FAERS Safety Report 9005601 (Version 1)
Quarter: 2013Q1

REPORT INFORMATION
  Report Type: Spontaneous
  Country: US (occurrence: US)
  Receive Date: 20130109
  Receipt Date: 20130109
  Transmission Date: 20140127
  Serious: Yes (Other)
  Sender: FDA-Public Use
  Company Number: US-TEVA-379590USA

PATIENT
  Age: 86 Year
  Sex: Female
  Weight: 68 kg

DRUGS (2)
  1. FEXOFENADINE [Suspect]
     Indication: LARYNGITIS
     Dosage: 180 MILLIGRAM DAILY;
     Route: 048
     Dates: start: 20121228, end: 20121228
  2. CARDIAC THERAPY (NOS) [Concomitant]

REACTIONS (4)
  - Delirium [Recovered/Resolved]
  - Disorientation [Recovered/Resolved]
  - Off label use [Recovered/Resolved]
  - Drug administered to patient of inappropriate age [Recovered/Resolved]
